FAERS Safety Report 7221530-3 (Version None)
Quarter: 2011Q1

REPORT INFORMATION
  Report Type: 
  Country: None (occurrence: None)
  Receive Date: 20110112
  Receipt Date: 20110103
  Transmission Date: 20110831
  Serious: Yes (Hospitalization)
  Sender: FDA-Public Use
  Company Number: GB-ELI_LILLY_AND_COMPANY-GB201101001026

PATIENT
  Age: 75 Year
  Sex: Male

DRUGS (5)
  1. PEMETREXED [Suspect]
     Indication: LUNG NEOPLASM MALIGNANT
     Route: 042
     Dates: start: 20101130, end: 20101130
  2. CARBOPLATIN [Suspect]
     Indication: LUNG NEOPLASM MALIGNANT
     Route: 042
     Dates: start: 20101130, end: 20101130
  3. DALTEPARIN SODIUM [Suspect]
     Indication: LUNG NEOPLASM MALIGNANT
     Dates: start: 20100914, end: 20100923
  4. DEXAMETHASONE [Concomitant]
     Dates: start: 20101130, end: 20101203
  5. ONDANSETRON [Concomitant]
     Dates: start: 20101130, end: 20101203

REACTIONS (1)
  - DEHYDRATION [None]
